FAERS Safety Report 12751249 (Version 1)
Quarter: 2016Q3

REPORT INFORMATION
  Report Type: Spontaneous
  Country: US (occurrence: US)
  Receive Date: 20160916
  Receipt Date: 20160916
  Transmission Date: 20161109
  Serious: Yes (Disabling)
  Sender: FDA-Public Use
  Company Number: None

PATIENT
  Age: 71 Year
  Sex: Male
  Weight: 66.68 kg

DRUGS (14)
  1. VENLAFAXINE [Concomitant]
     Active Substance: VENLAFAXINE HYDROCHLORIDE
  2. OMEPRAZOLE. [Concomitant]
     Active Substance: OMEPRAZOLE
  3. TEA [Concomitant]
     Active Substance: TEA LEAF
  4. CLONAZEPAM. [Concomitant]
     Active Substance: CLONAZEPAM
  5. PROBIOTIC [Concomitant]
     Active Substance: PROBIOTICS NOS
  6. MULTIVITAMIN [Concomitant]
     Active Substance: VITAMINS
  7. OMEGA3 [Concomitant]
  8. DARIFENACIN ER HBR TAB 15MG ONCE A DAY [Suspect]
     Active Substance: DARIFENACIN HYDROBROMIDE
     Indication: URINARY INCONTINENCE
     Dosage: 1 TAB DAILY WITH FULL GLASS WATER ONE DAILY WITH WATER MOUTH
     Route: 048
     Dates: start: 20160802, end: 20160804
  9. BUPROION [Concomitant]
  10. ENABLEX [Concomitant]
     Active Substance: DARIFENACIN HYDROBROMIDE
  11. SIMVASTATIN. [Concomitant]
     Active Substance: SIMVASTATIN
  12. CRANBERRY. [Concomitant]
     Active Substance: CRANBERRY
  13. TRAZODONE [Concomitant]
     Active Substance: TRAZODONE HYDROCHLORIDE
  14. EPIPEN [Concomitant]
     Active Substance: EPINEPHRINE

REACTIONS (4)
  - Diarrhoea [None]
  - Reaction to drug excipients [None]
  - Product substitution issue [None]
  - Drug ineffective [None]

NARRATIVE: CASE EVENT DATE: 20160701
